FAERS Safety Report 21506721 (Version 1)
Quarter: 2022Q4

REPORT INFORMATION
  Report Type: Report from Study
  Country: US (occurrence: US)
  Receive Date: 20221026
  Receipt Date: 20221026
  Transmission Date: 20230112
  Serious: No
  Sender: FDA-Public Use
  Company Number: US-ABBVIE-4145953

PATIENT
  Sex: Female

DRUGS (4)
  1. HUMIRA [Suspect]
     Active Substance: ADALIMUMAB
     Indication: Product used for unknown indication
     Route: 058
  2. Pfizer/BioNTech Covid 19 Vaccine [Concomitant]
     Indication: COVID-19 immunisation
     Dosage: 1 ON ONCE ?1ST DOSE
     Route: 030
     Dates: start: 20211001, end: 20211001
  3. Pfizer/BioNTech Covid 19 Vaccine [Concomitant]
     Indication: COVID-19 immunisation
     Dosage: 2ND DOSE?1 IN ONCE
     Route: 030
     Dates: start: 20211017, end: 20211017
  4. Pfizer/BioNTech Covid 19 Vaccine [Concomitant]
     Indication: COVID-19 immunisation
     Dosage: 1 IN ONCE ?BOOSTER/THIRD DOSE
     Route: 030
     Dates: start: 20220701, end: 20220701

REACTIONS (2)
  - Drug ineffective [Unknown]
  - Crohn^s disease [Recovering/Resolving]
